FAERS Safety Report 5758547-1 (Version None)
Quarter: 2008Q2

REPORT INFORMATION
  Report Type: 
  Country: None (occurrence: None)
  Receive Date: 20080604
  Receipt Date: 20080526
  Transmission Date: 20081010
  Serious: Yes (Life-Threatening, Hospitalization)
  Sender: FDA-Public Use
  Company Number: A0731000A

PATIENT
  Age: 61 Year
  Sex: Male

DRUGS (1)
  1. ARIXTRA [Suspect]
     Route: 058
     Dates: start: 20080512, end: 20080520

REACTIONS (2)
  - CARDIAC FAILURE CONGESTIVE [None]
  - DRUG INEFFECTIVE [None]
